FAERS Safety Report 8068777-4 (Version None)
Quarter: 2012Q1

REPORT INFORMATION
  Report Type: 
  Country: None (occurrence: None)
  Receive Date: 20120124
  Receipt Date: 20120104
  Transmission Date: 20120608
  Serious: No
  Sender: FDA-Public Use
  Company Number: US-AMGEN-USASP2011060154

PATIENT
  Age: 65 Year
  Sex: Female

DRUGS (12)
  1. SYNTHROID [Concomitant]
     Dosage: 150 MG, UNK
     Dates: start: 19830101
  2. FISH OIL [Concomitant]
     Dosage: UNK
     Dates: start: 20090501
  3. ZETIA [Concomitant]
     Dosage: UNK
     Dates: start: 20090501
  4. CYMBALTA [Concomitant]
     Dosage: UNK
     Dates: start: 20090501
  5. PROLIA [Suspect]
     Indication: OSTEOPOROSIS POSTMENOPAUSAL
     Dosage: 60 MG, Q6MO
     Route: 058
     Dates: start: 20110725, end: 20110725
  6. PLAVIX [Concomitant]
     Dosage: UNK
     Dates: start: 20090501
  7. SENQUEL-AD [Concomitant]
     Dosage: UNK
     Dates: start: 20090501
  8. TRICOR [Concomitant]
     Dosage: UNK
     Dates: start: 20090501
  9. ANTIHYPERTENSIVES [Concomitant]
     Dosage: UNK
  10. ASPIRIN [Concomitant]
     Dosage: UNK
     Dates: start: 20090501
  11. NIASPAN [Concomitant]
     Dosage: UNK
     Dates: start: 20090501
  12. NORCO [Concomitant]
     Dosage: UNK

REACTIONS (4)
  - KYPHOSIS [None]
  - POSTURE ABNORMAL [None]
  - BACK PAIN [None]
  - ARTHRALGIA [None]
